FAERS Safety Report 15589469 (Version 2)
Quarter: 2018Q4

REPORT INFORMATION
  Report Type: Spontaneous
  Country: IN (occurrence: IN)
  Receive Date: 20181106
  Receipt Date: 20181221
  Transmission Date: 20190205
  Serious: Yes (Hospitalization, Other)
  Sender: FDA-Public Use
  Company Number: IN-TORRENT-00001943

PATIENT
  Age: 63 Year
  Sex: Male

DRUGS (2)
  1. CARBAMAZEPINE. [Suspect]
     Active Substance: CARBAMAZEPINE
     Indication: SEIZURE
     Dosage: 600 MG DAILY IN DIVIDED DOSE
  2. PHENYTOIN. [Suspect]
     Active Substance: PHENYTOIN
     Indication: SEIZURE
     Dosage: 300 MG DAILY

REACTIONS (8)
  - Rash maculo-papular [Recovered/Resolved with Sequelae]
  - Face oedema [Recovered/Resolved]
  - Rash generalised [Recovered/Resolved]
  - Rash [Recovered/Resolved]
  - Lip swelling [Recovered/Resolved]
  - Pyrexia [Recovered/Resolved]
  - Ulcer [Recovered/Resolved]
  - Therapeutic product cross-reactivity [Recovered/Resolved]
